FAERS Safety Report 8877686 (Version 1)
Quarter: 2012Q4

REPORT INFORMATION
  Report Type: 
  Country: US (occurrence: US)
  Receive Date: 20121024
  Receipt Date: 20121024
  Transmission Date: 20130627
  Serious: Yes (Other)
  Sender: FDA-Public Use
  Company Number: PHEH2012US020676

PATIENT
  Sex: Male

DRUGS (2)
  1. TEKTURNA [Suspect]
  2. XANAX [Concomitant]
     Dosage: 0.5 mg, UNK

REACTIONS (1)
  - Weight decreased [Unknown]
